FAERS Safety Report 4554274-7 (Version None)
Quarter: 2005Q1

REPORT INFORMATION
  Report Type: 
  Country: None (occurrence: None)
  Receive Date: 20050118
  Receipt Date: 20020426
  Transmission Date: 20050727
  Serious: Yes (Other)
  Sender: FDA-Public Use
  Company Number: US-GLAXOSMITHKLINE-A0367518A

PATIENT
  Sex: Male

DRUGS (1)
  1. PAXIL [Suspect]
     Indication: SOCIAL PHOBIA
     Dosage: 20MG SEE DOSAGE TEXT
     Dates: start: 19980801

REACTIONS (8)
  - AGGRESSION [None]
  - LOSS OF CONSCIOUSNESS [None]
  - MURDER [None]
  - PARAESTHESIA [None]
  - SLEEP DISORDER [None]
  - SUICIDAL IDEATION [None]
  - THOUGHT INSERTION [None]
  - VISION BLURRED [None]
